FAERS Safety Report 8286452-8 (Version None)
Quarter: 2012Q2

REPORT INFORMATION
  Report Type: 
  Country: None (occurrence: None)
  Receive Date: 20120416
  Receipt Date: 20120412
  Transmission Date: 20120825
  Serious: Yes (Other)
  Sender: FDA-Public Use
  Company Number: US-PFIZER INC-2012092486

PATIENT
  Sex: Female
  Weight: 58.96 kg

DRUGS (2)
  1. LIPITOR [Suspect]
     Indication: BLOOD CHOLESTEROL INCREASED
     Dosage: 40 MG, DAILY
     Dates: start: 20020101
  2. LIPITOR [Suspect]
     Indication: COLITIS ISCHAEMIC

REACTIONS (3)
  - OVARIAN CANCER STAGE I [None]
  - VOMITING [None]
  - BODY HEIGHT DECREASED [None]
